FAERS Safety Report 22314720 (Version 2)
Quarter: 2023Q2

REPORT INFORMATION
  Report Type: Spontaneous
  Country: US (occurrence: US)
  Receive Date: 20230512
  Receipt Date: 20230626
  Transmission Date: 20230722
  Serious: No
  Sender: FDA-Public Use
  Company Number: US-TEVA-2022-US-2042693

PATIENT
  Age: 54 Year
  Sex: Female

DRUGS (3)
  1. PROAIR RESPICLICK [Suspect]
     Active Substance: ALBUTEROL SULFATE
     Indication: Product used for unknown indication
     Dosage: 117 MCG/ ACTUATION, 1 PUFF EVERY 4 HOURS , PRN
     Route: 065
     Dates: start: 20220504
  2. ALBUTEROL SULFATE [Concomitant]
     Active Substance: ALBUTEROL SULFATE
     Indication: Product used for unknown indication
     Dosage: 1.25MG/3ML , INHALATION NEBULIZATION SOLUTION, 3 ML VILES
     Dates: start: 20210216
  3. FLUTICASONE PROPIONATE HFA [Concomitant]
     Active Substance: FLUTICASONE PROPIONATE
     Indication: Product used for unknown indication
     Dosage: 44 MCG/ACT INHALATION AEROSOL, 2 PUFFS INHALED ORALLY
     Dates: start: 20201105

REACTIONS (3)
  - Dyspnoea [Unknown]
  - Adverse event [Unknown]
  - Product use issue [Unknown]
